FAERS Safety Report 7806913-2 (Version None)
Quarter: 2011Q4

REPORT INFORMATION
  Report Type: 
  Country: None (occurrence: None)
  Receive Date: 20111011
  Receipt Date: 20111007
  Transmission Date: 20120403
  Serious: Yes (Congenital Anomaly)
  Sender: FDA-Public Use
  Company Number: GXKR2011DE02999

PATIENT

DRUGS (6)
  1. ENOXAPARIN SODIUM [Concomitant]
     Dosage: MATERNAL DOSE: 140 [MG/D (60+80) ] (GW 10.5 TO 13.1)
     Route: 064
  2. TORSEMIDE [Suspect]
     Dosage: MATERNAL DOSE: 10 MG, QD (UNTIL GW 12.3)
     Route: 064
  3. FALITHROM [Suspect]
     Dosage: MATERNAL DOSE: 6 MG/D (2X3) (UNTIL GW 10.4)
     Route: 064
  4. CYCLOSPORINE [Suspect]
     Dosage: MATERNAL DOSE: 300 MG/D (2X150) (UNTIL GW 13.1)
     Route: 064
  5. RAMIPRIL [Suspect]
     Dosage: MATERNAL DOSE: 5 MG/D  (UNTIL GW 12.3)
     Route: 064
  6. PREDNISOLONE [Concomitant]
     Dosage: MATERNAL DOSE: 7.5 [MG/D ] (UNTIL GW 13.1)
     Route: 064

REACTIONS (6)
  - FALLOT'S TETRALOGY [None]
  - SINGLE UMBILICAL ARTERY [None]
  - ULTRASOUND ANTENATAL SCREEN ABNORMAL [None]
  - MATERNAL EXPOSURE DURING PREGNANCY [None]
  - TRICUSPID VALVE INCOMPETENCE [None]
  - MATERNAL DRUGS AFFECTING FOETUS [None]
